FAERS Safety Report 10578554 (Version 3)
Quarter: 2015Q1

REPORT INFORMATION
  Report Type: Report from Study
  Country: GB (occurrence: GB)
  Receive Date: 20141112
  Receipt Date: 20150331
  Transmission Date: 20150720
  Serious: Yes (Hospitalization)
  Sender: FDA-Public Use
  Company Number: GB-JNJFOC-20141008831

PATIENT
  Age: 67 Year
  Sex: Female

DRUGS (7)
  1. IBRUTINIB [Suspect]
     Active Substance: IBRUTINIB
     Indication: CHRONIC LYMPHOCYTIC LEUKAEMIA
     Route: 048
     Dates: start: 20140905, end: 20140918
  2. DALTEPARIN [Suspect]
     Active Substance: DALTEPARIN
     Indication: DEEP VEIN THROMBOSIS
     Dosage: 10000 UNITS
     Dates: start: 20140805
  3. HEPARIN [Concomitant]
     Active Substance: HEPARIN SODIUM
     Route: 058
  4. ALLOPURINOL. [Concomitant]
     Active Substance: ALLOPURINOL
     Indication: GOUT
     Route: 048
  5. OMEPRAZOLE. [Concomitant]
     Active Substance: OMEPRAZOLE
     Indication: GASTROOESOPHAGEAL REFLUX DISEASE
     Route: 048
  6. CYCLIZINE [Concomitant]
     Active Substance: CYCLIZINE
     Indication: ANTIEMETIC SUPPORTIVE CARE
     Route: 048
  7. DALTEPARIN [Suspect]
     Active Substance: DALTEPARIN
     Indication: DEEP VEIN THROMBOSIS
     Dosage: 5000 UNITS
     Dates: start: 20140908

REACTIONS (4)
  - Thrombocytopenia [Recovered/Resolved]
  - Cellulitis [Unknown]
  - Infection [Recovered/Resolved]
  - Contusion [Recovered/Resolved]

NARRATIVE: CASE EVENT DATE: 20140908
